FAERS Safety Report 7202400-3 (Version None)
Quarter: 2010Q4

REPORT INFORMATION
  Report Type: 
  Country: None (occurrence: None)
  Receive Date: 20101220
  Receipt Date: 20101203
  Transmission Date: 20110411
  Serious: Yes (Hospitalization)
  Sender: FDA-Public Use
  Company Number: 1000017732

PATIENT
  Age: 51 Year
  Sex: Female

DRUGS (3)
  1. CITALOPRAM HYDROBROMIDE [Suspect]
     Indication: MUSCLE SPASMS
  2. CITALOPRAM HYDROBROMIDE [Suspect]
     Indication: MUSCLE SPASMS
  3. MAGNESIUM (MAGNESIUM) (MAGNESIUM) [Concomitant]

REACTIONS (3)
  - LOSS OF CONSCIOUSNESS [None]
  - OFF LABEL USE [None]
  - TORSADE DE POINTES [None]
